FAERS Safety Report 5171187-0 (Version None)
Quarter: 2006Q4

REPORT INFORMATION
  Report Type: 
  Country: None (occurrence: None)
  Receive Date: 20061213
  Receipt Date: 20051205
  Transmission Date: 20070319
  Serious: Yes (Other)
  Sender: FDA-Public Use
  Company Number: US-AMGEN-KDC160290

PATIENT
  Sex: Male

DRUGS (2)
  1. ENBREL [Suspect]
     Indication: PSORIASIS
     Route: 058
     Dates: start: 20030512, end: 20051205
  2. SORIATANE [Concomitant]

REACTIONS (3)
  - CONDITION AGGRAVATED [None]
  - HERPES ZOSTER [None]
  - PSORIASIS [None]
